FAERS Safety Report 15658356 (Version 1)
Quarter: 2018Q4

REPORT INFORMATION
  Report Type: Spontaneous
  Country: FR (occurrence: FR)
  Receive Date: 20181126
  Receipt Date: 20181126
  Transmission Date: 20190205
  Serious: Yes (Hospitalization)
  Sender: FDA-Public Use
  Company Number: FR-TEVA-2018-FR-978453

PATIENT
  Age: 29 Year
  Sex: Male
  Weight: 80 kg

DRUGS (5)
  1. KETAMINE [Suspect]
     Active Substance: KETAMINE
     Indication: ANAESTHESIA
     Route: 042
     Dates: start: 20180623, end: 20180829
  2. LINEZOLIDE [Suspect]
     Active Substance: LINEZOLID
     Indication: CELLULITIS
     Dosage: 1200 MILLIGRAM DAILY;
     Route: 042
     Dates: start: 20180706, end: 20180720
  3. NORADRENALINE [Suspect]
     Active Substance: NOREPINEPHRINE
     Indication: BLOOD PRESSURE MANAGEMENT
     Route: 042
     Dates: start: 20180623, end: 20180708
  4. PARACETAMOL [Suspect]
     Active Substance: ACETAMINOPHEN
     Indication: PAIN
     Dosage: 3 GRAM DAILY;
     Route: 041
     Dates: start: 20180623, end: 20180806
  5. MEROPENEM ANHYDRE [Suspect]
     Active Substance: MEROPENEM
     Indication: CELLULITIS
     Dosage: 3 GRAM DAILY;
     Route: 042
     Dates: start: 20180706, end: 20180720

REACTIONS (3)
  - Cholangiolitis [Not Recovered/Not Resolved]
  - Cholestasis [Not Recovered/Not Resolved]
  - Hepatomegaly [Not Recovered/Not Resolved]

NARRATIVE: CASE EVENT DATE: 20180707
